FAERS Safety Report 6519192-3 (Version None)
Quarter: 2009Q4

REPORT INFORMATION
  Report Type: 
  Country: None (occurrence: None)
  Receive Date: 20091224
  Receipt Date: 20091224
  Transmission Date: 20100525
  Serious: Yes (Other)
  Sender: FDA-Public Use
  Company Number: None

PATIENT
  Age: 23 Year
  Sex: Male
  Weight: 97.5234 kg

DRUGS (3)
  1. OXYCONTIN [Suspect]
     Indication: INTERVERTEBRAL DISC DEGENERATION
     Dosage: 3 PER DAY PO
     Route: 048
     Dates: start: 20090210, end: 20091223
  2. OXYCONTIN [Suspect]
     Indication: INTERVERTEBRAL DISC PROTRUSION
     Dosage: 3 PER DAY PO
     Route: 048
     Dates: start: 20090210, end: 20091223
  3. OXYCODONE HCL [Suspect]
     Indication: BREAKTHROUGH PAIN
     Dosage: AS NEEDED FOR PAIN PO
     Route: 048
     Dates: start: 20080718, end: 20090923

REACTIONS (2)
  - SCREAMING [None]
  - TIC [None]
